FAERS Safety Report 24625696 (Version 2)
Quarter: 2024Q4

REPORT INFORMATION
  Report Type: Spontaneous
  Country: HU (occurrence: HU)
  Receive Date: 20241115
  Receipt Date: 20241225
  Transmission Date: 20250115
  Serious: Yes (Hospitalization)
  Sender: BIOGEN
  Company Number: HU-BIOGEN-2024BI01290022

PATIENT
  Age: 6 Year
  Sex: Female

DRUGS (2)
  1. SPINRAZA [Suspect]
     Active Substance: NUSINERSEN
     Indication: Spinal muscular atrophy
     Dosage: 12 MG/5ML
     Route: 050
     Dates: start: 20200417
  2. VITAMIN D [Concomitant]
     Active Substance: VITAMIN D NOS
     Indication: Product used for unknown indication
     Route: 050

REACTIONS (9)
  - Traumatic lumbar puncture [Recovered/Resolved]
  - Post procedural haemorrhage [Recovered/Resolved]
  - Dysstasia [Recovered/Resolved]
  - Hypoaesthesia [Recovered/Resolved]
  - Dural tear [Unknown]
  - Back pain [Recovered/Resolved]
  - Vomiting [Recovered/Resolved]
  - Headache [Recovered/Resolved]
  - Pain [Unknown]

NARRATIVE: CASE EVENT DATE: 20241031
